FAERS Safety Report 9290578 (Version 1)
Quarter: 2013Q2

REPORT INFORMATION
  Report Type: Spontaneous
  Country: US (occurrence: None)
  Receive Date: 20130508
  Receipt Date: 20130508
  Transmission Date: 20140414
  Serious: Yes (Hospitalization)
  Sender: FDA-Public Use
  Company Number: None

PATIENT
  Age: 36 None
  Sex: Female
  Weight: 72 kg

DRUGS (11)
  1. GLYBURIDE [Suspect]
     Dosage: 2.5MG QD PO
     Route: 048
  2. BACLOFEN [Concomitant]
  3. MYCOPHENDATE [Concomitant]
  4. GABAPENTIN [Concomitant]
  5. OXCARBAZEPINE [Concomitant]
  6. LISINOPRIL [Concomitant]
  7. ASPIRIN [Concomitant]
  8. CALCIUM + D [Concomitant]
  9. LANSOPRAZOLE [Concomitant]
  10. TRAMADOL [Concomitant]
  11. PREDNISONE [Concomitant]

REACTIONS (5)
  - Drug dispensing error [None]
  - Product commingling [None]
  - Mental status changes [None]
  - Hypoglycaemia [None]
  - Wrong drug administered [None]
